FAERS Safety Report 4663598-4 (Version None)
Quarter: 2005Q2

REPORT INFORMATION
  Report Type: 
  Country: None (occurrence: None)
  Receive Date: 20050517
  Receipt Date: 20050509
  Transmission Date: 20051028
  Serious: Yes (Hospitalization)
  Sender: FDA-Public Use
  Company Number: GB-ROCHE-404230

PATIENT
  Age: 47 Year
  Sex: Male

DRUGS (1)
  1. ORLISTAT [Suspect]
     Indication: OBESITY
     Route: 048
     Dates: start: 20041019, end: 20050212

REACTIONS (2)
  - ALCOHOL USE [None]
  - PANCREATITIS [None]
